FAERS Safety Report 8952611 (Version 1)
Quarter: 2012Q4

REPORT INFORMATION
  Report Type: 
  Country: US (occurrence: US)
  Receive Date: 20121205
  Receipt Date: 20121205
  Transmission Date: 20130627
  Serious: No
  Sender: FDA-Public Use
  Company Number: US-009507513-1212USA001615

PATIENT
  Age: 2 Year
  Sex: Female
  Weight: 11.79 kg

DRUGS (2)
  1. CLARITIN ORAL SOLUTION [Suspect]
     Indication: NASOPHARYNGITIS
     Dosage: 5 ml, qd
     Route: 048
  2. CLARITIN ORAL SOLUTION [Suspect]
     Dosage: 5 ml, bid
     Route: 048
     Dates: start: 20121102

REACTIONS (2)
  - Overdose [Unknown]
  - Off label use [Unknown]
